FAERS Safety Report 9285798 (Version 2)
Quarter: 2013Q2

REPORT INFORMATION
  Report Type: Spontaneous
  Country: US (occurrence: US)
  Receive Date: 20130513
  Receipt Date: 20130619
  Transmission Date: 20140414
  Serious: Yes (Other)
  Sender: FDA-Public Use
  Company Number: US-PFIZER INC-2013146247

PATIENT
  Age: 65 Year
  Sex: Male
  Weight: 102 kg

DRUGS (5)
  1. LYRICA [Suspect]
     Indication: DIABETIC NEUROPATHY
     Dosage: 400 MG (FOUR 100MG), 2X/DAY
     Route: 048
     Dates: start: 2005
  2. LYRICA [Suspect]
     Indication: NERVE INJURY
     Dosage: 300 MG, 2X/DAY
     Route: 048
     Dates: end: 201305
  3. LYRICA [Suspect]
     Dosage: 400 MG (FOUR 100MG), 2X/DAY
     Route: 048
     Dates: start: 201305
  4. LIPITOR [Concomitant]
     Indication: BLOOD CHOLESTEROL INCREASED
     Dosage: UNK
  5. METFORMIN [Concomitant]
     Indication: DIABETES MELLITUS
     Dosage: UNK

REACTIONS (3)
  - Paralysis [Unknown]
  - Drug ineffective [Unknown]
  - Intentional overdose [Unknown]
